FAERS Safety Report 7718213-X (Version None)
Quarter: 2011Q3

REPORT INFORMATION
  Report Type: 
  Country: None (occurrence: None)
  Receive Date: 20110830
  Receipt Date: 20110819
  Transmission Date: 20111222
  Serious: Yes (Hospitalization, Other)
  Sender: FDA-Public Use
  Company Number: PHHY2011BR53977

PATIENT
  Sex: Female

DRUGS (11)
  1. MONOCORDIL [Concomitant]
     Dosage: 3 DF, DAILY
     Route: 048
  2. GLYBURIDE [Concomitant]
     Dosage: 1 DF, DAILY
     Route: 048
  3. LEVOTHYROXINE SODIUM [Concomitant]
     Dosage: 1 DF, DAILY
     Route: 048
  4. OMEPRAZOLE [Concomitant]
     Dosage: 1 DF, DAILY
     Route: 048
  5. ALDOMET [Concomitant]
     Dosage: 2 DF, DAILY
     Route: 048
  6. ASPIRIN [Concomitant]
     Dosage: 2 DF, DAILY
     Route: 048
  7. GALVUS MET [Suspect]
     Dosage: 2 DF, DAILY
  8. EXFORGE [Suspect]
     Dosage: 1 DF, DAILY
  9. RASILEZ [Suspect]
     Dosage: 1 DF, DAILY
  10. SIMAVASTATIN [Concomitant]
     Dosage: 1 DF, DAILY
     Route: 048
  11. INDAPEN [Concomitant]
     Dosage: 1 DF, DAILY
     Route: 048

REACTIONS (2)
  - CEREBROVASCULAR ACCIDENT [None]
  - GAIT DISTURBANCE [None]
